FAERS Safety Report 4978289-X (Version None)
Quarter: 2006Q2

REPORT INFORMATION
  Report Type: 
  Country: None (occurrence: None)
  Receive Date: 20060417
  Receipt Date: 20060403
  Transmission Date: 20061013
  Serious: Yes (Hospitalization)
  Sender: FDA-Public Use
  Company Number: 2006PV011193

PATIENT
  Age: 60 Year
  Sex: Male
  Weight: 96.1626 kg

DRUGS (14)
  1. BYETTA [Suspect]
     Indication: DIABETES MELLITUS NON-INSULIN-DEPENDENT
     Dosage: SEE IMAGE
     Route: 058
     Dates: start: 20050929, end: 20051023
  2. BYETTA [Suspect]
     Indication: DIABETES MELLITUS NON-INSULIN-DEPENDENT
     Dosage: SEE IMAGE
     Route: 058
     Dates: start: 20051024, end: 20060301
  3. LISINOPRIL [Concomitant]
  4. GEMFIBROZIL [Concomitant]
  5. HYDROCHLOROTHIAZIDE [Concomitant]
  6. MAGNESIUM OXIDE [Concomitant]
  7. GLUCOPHAGE [Concomitant]
  8. GLUCOTROL XL [Concomitant]
  9. LASIX [Concomitant]
  10. LOVASTATIN [Concomitant]
  11. PAROXETINE HCL [Concomitant]
  12. ALPRAZOLAM [Concomitant]
  13. DILTIAZEM [Concomitant]
  14. SPIRONOLACTONE [Concomitant]

REACTIONS (13)
  - ANAEMIA [None]
  - ANAL FISTULA [None]
  - DIALYSIS [None]
  - FALL [None]
  - FATIGUE [None]
  - HAEMORRHOIDS [None]
  - IMPAIRED WORK ABILITY [None]
  - PAIN [None]
  - PHOTOPSIA [None]
  - RENAL FAILURE [None]
  - RHABDOMYOLYSIS [None]
  - VISUAL DISTURBANCE [None]
  - WEIGHT DECREASED [None]
